FAERS Safety Report 4331303-7 (Version None)
Quarter: 2004Q1

REPORT INFORMATION
  Report Type: 
  Country: None (occurrence: None)
  Receive Date: 20040329
  Receipt Date: 20040316
  Transmission Date: 20041129
  Serious: Yes (Hospitalization, Other)
  Sender: FDA-Public Use
  Company Number: HQWYE236120AUG03

PATIENT
  Age: 48 Year
  Sex: Male
  Weight: 73.2 kg

DRUGS (4)
  1. RAPAMUNE [Suspect]
     Indication: PROPHYLAXIS AGAINST TRANSPLANT REJECTION
     Dosage: 10 MG 1X PER 1 DAY, ORAL
     Route: 048
     Dates: start: 20030610, end: 20030728
  2. BACTRIM [Suspect]
  3. PROGRAF [Suspect]
     Indication: PROPHYLAXIS AGAINST TRANSPLANT REJECTION
     Dates: end: 20030101
  4. PROGRAF [Suspect]
     Indication: PROPHYLAXIS AGAINST TRANSPLANT REJECTION
     Dates: start: 20030822

REACTIONS (22)
  - ACUTE RESPIRATORY DISTRESS SYNDROME [None]
  - BACTERIURIA [None]
  - BLOOD GLUCOSE INCREASED [None]
  - BLOOD PRESSURE INCREASED [None]
  - BLOOD SODIUM INCREASED [None]
  - BODY TEMPERATURE INCREASED [None]
  - CARDIAC FAILURE CONGESTIVE [None]
  - CARDIOMEGALY [None]
  - DEEP VEIN THROMBOSIS [None]
  - DRUG TOXICITY [None]
  - HAEMATOCRIT DECREASED [None]
  - HAEMOGLOBIN DECREASED [None]
  - HYPOTENSION [None]
  - MYOCARDIAL INFARCTION [None]
  - PH BODY FLUID DECREASED [None]
  - PLEURAL EFFUSION [None]
  - PNEUMONIA ASPERGILLUS [None]
  - PULMONARY OEDEMA [None]
  - RED BLOOD CELL COUNT DECREASED [None]
  - RENAL FAILURE ACUTE [None]
  - RENAL TUBULAR NECROSIS [None]
  - STAPHYLOCOCCAL INFECTION [None]
